FAERS Safety Report 13132344 (Version 1)
Quarter: 2017Q1

REPORT INFORMATION
  Report Type: Report from Study
  Country: None (occurrence: CH)
  Receive Date: 20170120
  Receipt Date: 20170120
  Transmission Date: 20170428
  Serious: Yes (Death)
  Sender: FDA-Public Use
  Company Number: CH-ABBVIE-17P-151-1832947-00

PATIENT
  Age: 80 Year
  Sex: Female

DRUGS (3)
  1. DUODOPA [Suspect]
     Active Substance: CARBIDOPA\LEVODOPA
     Indication: PARKINSON^S DISEASE
     Dosage: MORNING DOSE: 9.0ML  CONTINUOUS RATE: 3.6ML/H  EXTRA DOSE: 1.5
     Route: 050
     Dates: start: 20160224, end: 20170104
  2. DUODOPA [Suspect]
     Active Substance: CARBIDOPA\LEVODOPA
     Dosage: MORNING DOSE: 9.0ML  CONTINUOUS RATE: 3.6ML/H  EXTRA DOSE: 1.5
     Route: 050
     Dates: start: 20170104, end: 20170104
  3. DUODOPA [Suspect]
     Active Substance: CARBIDOPA\LEVODOPA
     Dosage: MORNING DOSE: 9.0ML  CONTINUOUS RATE: 3.6ML/H  EXTRA DOSE: 1.5
     Route: 050
     Dates: start: 20170104

REACTIONS (4)
  - Incorrect route of drug administration [Recovered/Resolved]
  - Bedridden [Not Recovered/Not Resolved]
  - Pneumonia [Fatal]
  - Device occlusion [Recovered/Resolved]

NARRATIVE: CASE EVENT DATE: 201612
